FAERS Safety Report 5469639-9 (Version None)
Quarter: 2007Q3

REPORT INFORMATION
  Report Type: 
  Country: None (occurrence: None)
  Receive Date: 20070820
  Receipt Date: 20070430
  Transmission Date: 20080115
  Serious: No
  Sender: FDA-Public Use
  Company Number: WAES 0705USA00145

PATIENT
  Age: 56 Year
  Sex: Male

DRUGS (15)
  1. JANUVIA [Suspect]
     Indication: TYPE 2 DIABETES MELLITUS
     Dosage: 100 MG/DAILY/PO
     Route: 048
     Dates: start: 20070322, end: 20070424
  2. ACTOS [Concomitant]
  3. BYETTA [Concomitant]
  4. CRESTOR [Concomitant]
  5. FOLTX [Concomitant]
  6. GLUCOPHAGE [Concomitant]
  7. LANTUS [Concomitant]
  8. PROVIGIL [Concomitant]
  9. TOPROL-XL [Concomitant]
  10. TRICOR [Concomitant]
  11. WELLBUTRIN XL [Concomitant]
  12. ASPIRIN [Concomitant]
  13. CHROMIUM           (UNSPECIFIED) [Concomitant]
  14. LISINOPRIL [Concomitant]
  15. OMEGA-3 MARINE TRIGLYCERIDES [Concomitant]

REACTIONS (2)
  - PRURITUS [None]
  - PURPURA [None]
